FAERS Safety Report 25676551 (Version 1)
Quarter: 2025Q3

REPORT INFORMATION
  Report Type: Spontaneous
  Country: CA (occurrence: CA)
  Receive Date: 20250813
  Receipt Date: 20250813
  Transmission Date: 20251021
  Serious: Yes (Hospitalization, Other)
  Sender: DIFGEN PHARMACEUTICALS LLC
  Company Number: CA-Difgen-012112

PATIENT
  Age: 55 Year
  Sex: Male

DRUGS (1)
  1. FENTANYL [Suspect]
     Active Substance: FENTANYL
     Indication: Product used for unknown indication
     Route: 065

REACTIONS (13)
  - Cerebral venous sinus thrombosis [Unknown]
  - Overdose [Unknown]
  - Altered state of consciousness [Unknown]
  - Mental status changes [Unknown]
  - Hemiparesis [Unknown]
  - Drug withdrawal syndrome [Recovered/Resolved]
  - Prescription drug used without a prescription [Unknown]
  - Piloerection [Recovered/Resolved]
  - Myalgia [Recovered/Resolved]
  - Arthralgia [Recovered/Resolved]
  - Diarrhoea [Recovered/Resolved]
  - Anaemia [Unknown]
  - Drug use disorder [Unknown]
